FAERS Safety Report 16184607 (Version 1)
Quarter: 2019Q2

REPORT INFORMATION
  Report Type: Spontaneous
  Country: US (occurrence: US)
  Receive Date: 20190410
  Receipt Date: 20190410
  Transmission Date: 20190711
  Serious: Yes (Disabling)
  Sender: FDA-Public Use
  Company Number: None

PATIENT
  Age: 61 Year
  Sex: Male
  Weight: 78.75 kg

DRUGS (6)
  1. GENERIC CLARITIN [Concomitant]
     Active Substance: LORATADINE
  2. LISINOPRIL. [Concomitant]
     Active Substance: LISINOPRIL
  3. GABAPENTIN. [Concomitant]
     Active Substance: GABAPENTIN
  4. HCTZ [Concomitant]
     Active Substance: HYDROCHLOROTHIAZIDE
  5. FINASTERIDE. [Suspect]
     Active Substance: FINASTERIDE
     Indication: BENIGN PROSTATIC HYPERPLASIA
     Dosage: ?          QUANTITY:1 TABLET(S);?
     Route: 048
     Dates: start: 20171201, end: 20180101
  6. AMLODIPINE [Concomitant]
     Active Substance: AMLODIPINE BESYLATE

REACTIONS (4)
  - Sensory loss [None]
  - Erectile dysfunction [None]
  - Loss of libido [None]
  - Male orgasmic disorder [None]

NARRATIVE: CASE EVENT DATE: 20180401
